FAERS Safety Report 8861647 (Version 1)
Quarter: 2012Q4

REPORT INFORMATION
  Report Type: Spontaneous
  Country: US (occurrence: None)
  Receive Date: 20121025
  Receipt Date: 20121025
  Transmission Date: 20130627
  Serious: No
  Sender: FDA-Public Use
  Company Number: None

PATIENT
  Age: 65 Year
  Sex: Male

DRUGS (1)
  1. DOCETAXEL [Suspect]
     Indication: LUNG CANCER
     Route: 042
     Dates: start: 20120222, end: 20120222

REACTIONS (5)
  - Vision blurred [None]
  - Hypotension [None]
  - Respiratory depression [None]
  - Flushing [None]
  - Flushing [None]
